FAERS Safety Report 8572943-9 (Version None)
Quarter: 2012Q2

REPORT INFORMATION
  Report Type: 
  Country: None (occurrence: None)
  Receive Date: 20120423
  Receipt Date: 20081206
  Transmission Date: 20120825
  Serious: Yes (Other)
  Sender: FDA-Public Use
  Company Number: PHEH2008US10868

PATIENT

DRUGS (1)
  1. EXJADE [Suspect]
     Dosage: 30 MG/KG

REACTIONS (1)
  - SERUM FERRITIN INCREASED [None]
